FAERS Safety Report 17258207 (Version 1)
Quarter: 2020Q1

REPORT INFORMATION
  Report Type: Report from Study
  Country: CA (occurrence: CA)
  Receive Date: 20200110
  Receipt Date: 20200110
  Transmission Date: 20200409
  Serious: Yes (Hospitalization)
  Sender: FDA-Public Use
  Company Number: CA-PFIZER INC-2020009035

PATIENT
  Age: 61 Year
  Sex: Female

DRUGS (10)
  1. COSENTYX [Suspect]
     Active Substance: SECUKINUMAB
     Dosage: 300 MG, WEEKLY
     Route: 058
  2. REMICADE [Concomitant]
     Active Substance: INFLIXIMAB
     Route: 065
  3. CICLOSPORIN [Suspect]
     Active Substance: CYCLOSPORINE
     Route: 065
  4. COSENTYX [Suspect]
     Active Substance: SECUKINUMAB
     Dosage: 150 MG, UNK
     Route: 058
  5. OTEZLA [Concomitant]
     Active Substance: APREMILAST
     Route: 065
  6. ENBREL [Concomitant]
     Active Substance: ETANERCEPT
     Route: 065
  7. WARFARIN SODIUM. [Concomitant]
     Active Substance: WARFARIN SODIUM
     Indication: THROMBOPHLEBITIS
     Route: 065
  8. METHOTREXATE SODIUM. [Suspect]
     Active Substance: METHOTREXATE SODIUM
     Route: 065
  9. COSENTYX [Suspect]
     Active Substance: SECUKINUMAB
     Indication: PSORIASIS
     Dosage: 450 MG, MONTHLY
     Route: 058
  10. COSENTYX [Suspect]
     Active Substance: SECUKINUMAB
     Indication: PSORIATIC ARTHROPATHY
     Dosage: 300 MG, MONTHLY
     Route: 058

REACTIONS (7)
  - Pneumonia [Recovered/Resolved]
  - Discomfort [Recovered/Resolved]
  - Respiratory failure [Recovered/Resolved]
  - Gait disturbance [Recovered/Resolved]
  - Psoriasis [Recovered/Resolved]
  - Inappropriate schedule of product administration [Recovered/Resolved]
  - Product prescribing error [Recovered/Resolved]
